FAERS Safety Report 8172146 (Version 2)
Quarter: 2012Q4

REPORT INFORMATION
  Report Type: 
  Country: US (occurrence: US)
  Receive Date: 20111007
  Receipt Date: 20121003
  Transmission Date: 20130627
  Serious: Yes (Hospitalization, Disabling)
  Sender: FDA-Public Use
  Company Number: US-US-EMD SERONO, INC.-7086762

PATIENT
  Age: 56 None
  Sex: Female
  Weight: 81 kg

DRUGS (8)
  1. REBIF [Suspect]
     Indication: MULTIPLE SCLEROSIS
     Route: 058
     Dates: start: 20100125
  2. ZOLOFT [Concomitant]
     Indication: DEPRESSION
     Dates: start: 20120618
  3. TRAMADOL [Concomitant]
     Indication: PAIN
     Route: 048
     Dates: start: 20120618
  4. GABAPENTIN [Concomitant]
     Indication: MULTIPLE SCLEROSIS
     Dosage: two capsules
     Route: 048
     Dates: start: 20110607
  5. XANAX [Concomitant]
     Indication: ANXIETY
     Dosage: 1/2 to 1 tablet
     Route: 048
     Dates: start: 20110607
  6. OXYBUTYNIN CHLORIDE [Concomitant]
     Indication: PRODUCT USED FOR UNKNOWN INDICATION
     Route: 048
     Dates: start: 20110920
  7. MIRALAX [Concomitant]
     Indication: PRODUCT USED FOR UNKNOWN INDICATION
     Route: 048
     Dates: start: 20110920
  8. TYLENOL [Concomitant]
     Indication: PREMEDICATION
     Dosage: to 600 mg tablet taken at night as needed
     Route: 048
     Dates: start: 20110607

REACTIONS (5)
  - Pneumonia [Recovering/Resolving]
  - Central nervous system lesion [Recovering/Resolving]
  - Asthenia [Unknown]
  - Influenza like illness [Unknown]
  - Injection site pain [Not Recovered/Not Resolved]
